FAERS Safety Report 5704824-X (Version None)
Quarter: 2008Q2

REPORT INFORMATION
  Report Type: 
  Country: None (occurrence: None)
  Receive Date: 20080414
  Receipt Date: 20080402
  Transmission Date: 20081010
  Serious: Yes (Disabling, Other)
  Sender: FDA-Public Use
  Company Number: DK-PFIZER INC-2008029528

PATIENT
  Age: 25 Year
  Sex: Male

DRUGS (3)
  1. ZOLOFT [Suspect]
     Indication: SOCIAL PHOBIA
     Dates: start: 20070908, end: 20071003
  2. ZYPREXA [Concomitant]
  3. ZYPREXA [Concomitant]

REACTIONS (6)
  - ACTIVITIES OF DAILY LIVING IMPAIRED [None]
  - DIZZINESS [None]
  - DYSKINESIA [None]
  - FEELING ABNORMAL [None]
  - HEADACHE [None]
  - NAUSEA [None]
